FAERS Safety Report 6058538-X (Version None)
Quarter: 2009Q1

REPORT INFORMATION
  Report Type: 
  Country: None (occurrence: None)
  Receive Date: 20090130
  Receipt Date: 20081230
  Transmission Date: 20090719
  Serious: No
  Sender: FDA-Public Use
  Company Number: US-BAYER-200839585NA

PATIENT
  Age: 30 Year
  Sex: Female

DRUGS (1)
  1. MIRENA [Suspect]
     Indication: ENDOMETRIOSIS
     Route: 015
     Dates: start: 20081119

REACTIONS (5)
  - BLISTER [None]
  - CHAPPED LIPS [None]
  - CHEILITIS [None]
  - GENITAL HAEMORRHAGE [None]
  - PROCEDURAL PAIN [None]
